FAERS Safety Report 19427811 (Version 2)
Quarter: 2021Q3

REPORT INFORMATION
  Report Type: Spontaneous
  Country: JP (occurrence: JP)
  Receive Date: 20210616
  Receipt Date: 20210720
  Transmission Date: 20211014
  Serious: Yes (Death)
  Sender: FDA-Public Use
  Company Number: JP-GILEAD-2021-0535518

PATIENT
  Age: 81 Year
  Sex: Female

DRUGS (10)
  1. SOLU?MEDROL [Concomitant]
     Active Substance: METHYLPREDNISOLONE SODIUM SUCCINATE
     Indication: COVID-19
     Dosage: 500 MG, QD
     Route: 041
     Dates: start: 20210510, end: 20210516
  2. VEKLURY [Suspect]
     Active Substance: REMDESIVIR
     Indication: COVID-19
     Dosage: 200 MG, QD
     Route: 041
     Dates: start: 20210511, end: 20210511
  3. VEKLURY [Suspect]
     Active Substance: REMDESIVIR
     Dosage: 100 MG, QD
     Route: 041
     Dates: start: 20210512, end: 20210520
  4. DECADRON [Concomitant]
     Active Substance: DEXAMETHASONE
     Indication: COVID-19
     Dosage: 6 MG, BID
     Route: 048
     Dates: start: 20210423, end: 20210520
  5. ALVESCO [Concomitant]
     Active Substance: CICLESONIDE
     Dosage: UNK
     Dates: start: 20210423, end: 20210520
  6. COLCHICINE. [Concomitant]
     Active Substance: COLCHICINE
     Indication: COVID-19
     Dosage: 1 MG, BID
     Route: 048
     Dates: start: 20210423, end: 20210520
  7. CAMOSTAT MESILATE [Concomitant]
     Active Substance: CAMOSTAT MESYLATE
     Indication: COVID-19
     Dosage: 400 MG, BID
     Route: 048
     Dates: start: 20210430, end: 20210520
  8. AVIGAN [Concomitant]
     Active Substance: FAVIPIRAVIR
     Indication: COVID-19
     Dosage: 1600 MG, BID
     Route: 048
     Dates: start: 20210430, end: 20210430
  9. LIXIANA [Concomitant]
     Active Substance: EDOXABAN TOSYLATE
     Indication: ATRIAL FIBRILLATION
     Dosage: 30 MG, QD
     Route: 048
     Dates: start: 20210507, end: 20210516
  10. AVIGAN [Concomitant]
     Active Substance: FAVIPIRAVIR
     Dosage: 800 MG, BID
     Route: 048
     Dates: start: 20210501, end: 20210513

REACTIONS (1)
  - COVID-19 [Fatal]

NARRATIVE: CASE EVENT DATE: 20210520
